FAERS Safety Report 5754883-3 (Version None)
Quarter: 2008Q2

REPORT INFORMATION
  Report Type: 
  Country: None (occurrence: None)
  Receive Date: 20080531
  Receipt Date: 20071206
  Transmission Date: 20081010
  Serious: No
  Sender: FDA-Public Use
  Company Number: US-BOEHRINGER INGELHEIM GMBH, GERMANY-2007-BP-02077BP

PATIENT
  Sex: Female
  Weight: 82 kg

DRUGS (21)
  1. MIRAPEX [Suspect]
     Indication: FIBROMYALGIA
     Route: 048
     Dates: start: 20040714, end: 20050922
  2. DARVOCET [Concomitant]
     Indication: FIBROMYALGIA
  3. LITHIUM CARBONATE [Concomitant]
     Indication: BIPOLAR DISORDER
  4. GEODON [Concomitant]
     Indication: BIPOLAR DISORDER
  5. BUSPIRONE HCL [Concomitant]
     Indication: ANXIETY DISORDER
  6. VESICARE [Concomitant]
     Indication: INCONTINENCE
  7. WELLBUTRIN XL [Concomitant]
     Indication: DEPRESSION
  8. ULTRAM [Concomitant]
  9. PROTONIX [Concomitant]
  10. ATIVAN [Concomitant]
  11. PRILOSEC [Concomitant]
  12. PAXIL [Concomitant]
  13. PROZAC [Concomitant]
  14. ZOLOFT [Concomitant]
  15. TOPAMAX [Concomitant]
  16. VICODIN [Concomitant]
  17. LEVAQUIN [Concomitant]
     Indication: SINUSITIS
     Dates: start: 20050912, end: 20050922
  18. MEDROL [Concomitant]
     Dates: start: 20050401
  19. SUDAFED 12 HOUR [Concomitant]
     Dates: start: 20050401
  20. ALBUTEROL [Concomitant]
     Indication: BRONCHITIS
     Dates: start: 20050101
  21. VALTREX [Concomitant]

REACTIONS (8)
  - BIPOLAR DISORDER [None]
  - COMPULSIVE SHOPPING [None]
  - ECONOMIC PROBLEM [None]
  - EMOTIONAL DISTRESS [None]
  - INJURY [None]
  - OBSESSIVE-COMPULSIVE DISORDER [None]
  - PATHOLOGICAL GAMBLING [None]
  - SUICIDAL IDEATION [None]
